FAERS Safety Report 21814867 (Version 1)
Quarter: 2023Q1

REPORT INFORMATION
  Report Type: Spontaneous
  Country: JP (occurrence: JP)
  Receive Date: 20230104
  Receipt Date: 20230104
  Transmission Date: 20230417
  Serious: Yes (Other)
  Sender: FDA-Public Use
  Company Number: JP-STERISCIENCE B.V.-2022-ST-000489

PATIENT
  Age: 29 Year
  Sex: Female

DRUGS (5)
  1. BUPIVACAINE [Suspect]
     Active Substance: BUPIVACAINE
     Indication: Spinal anaesthesia
     Dosage: 12 MILLIGRAM
     Route: 037
  2. MORPHINE HYDROCHLORIDE [Suspect]
     Active Substance: MORPHINE HYDROCHLORIDE
     Indication: Spinal anaesthesia
     Dosage: 0.1 MILLIGRAM
     Route: 037
  3. FENTANYL CITRATE [Suspect]
     Active Substance: FENTANYL CITRATE
     Indication: Spinal anaesthesia
     Dosage: 10 MICROGRAM
     Route: 037
  4. OXYTOCIN [Suspect]
     Active Substance: OXYTOCIN
     Indication: Induced labour
     Dosage: UNK
     Route: 065
  5. POVIDONE-IODINE [Suspect]
     Active Substance: POVIDONE-IODINE
     Indication: Skin infection
     Dosage: UNK
     Route: 065

REACTIONS (2)
  - Arachnoiditis [Recovered/Resolved]
  - Maternal exposure during delivery [Unknown]
